FAERS Safety Report 13348798 (Version 2)
Quarter: 2018Q1

REPORT INFORMATION
  Report Type: Spontaneous
  Country: US (occurrence: US)
  Receive Date: 20170320
  Receipt Date: 20180320
  Transmission Date: 20180508
  Serious: No
  Sender: FDA-Public Use
  Company Number: US-TEVA-717034ACC

PATIENT
  Sex: Female
  Weight: 92 kg

DRUGS (2)
  1. NORTRIPTYLINE [Suspect]
     Active Substance: NORTRIPTYLINE
     Dosage: DOSE : 25/10
     Dates: start: 201212
  2. NORTRIPTYLINE [Suspect]
     Active Substance: NORTRIPTYLINE
     Dates: start: 201212

REACTIONS (1)
  - Dizziness [Recovered/Resolved]
